FAERS Safety Report 6686842-0 (Version None)
Quarter: 2010Q2

REPORT INFORMATION
  Report Type: 
  Country: None (occurrence: None)
  Receive Date: 20100416
  Receipt Date: 20100416
  Transmission Date: 20101027
  Serious: Yes (Life-Threatening)
  Sender: FDA-Public Use
  Company Number: None

PATIENT
  Age: 86 Year
  Sex: Female
  Weight: 58.9676 kg

DRUGS (1)
  1. CELEXA [Suspect]
     Indication: DRUG DISPENSING ERROR
     Dosage: 80 MG DAY PO
     Route: 048
     Dates: start: 20100331, end: 20100402

REACTIONS (6)
  - DIARRHOEA [None]
  - DRUG DISPENSING ERROR [None]
  - DRY MOUTH [None]
  - FATIGUE [None]
  - MALAISE [None]
  - WRONG DRUG ADMINISTERED [None]
